FAERS Safety Report 10148775 (Version 1)
Quarter: 2014Q2

REPORT INFORMATION
  Report Type: Report from Study
  Country: CA (occurrence: CA)
  Receive Date: 20140502
  Receipt Date: 20140502
  Transmission Date: 20141212
  Serious: Yes (Other)
  Sender: FDA-Public Use
  Company Number: CA-ABBVIE-14P-028-1229606-00

PATIENT
  Sex: Female

DRUGS (3)
  1. HUMIRA [Suspect]
     Indication: RHEUMATOID ARTHRITIS
     Route: 058
     Dates: start: 2004, end: 20131008
  2. HUMIRA [Suspect]
     Route: 058
     Dates: start: 20131119
  3. HYDROXYZINE [Concomitant]
     Indication: HYPERTENSION
     Route: 048

REACTIONS (2)
  - Cervical polyp [Recovered/Resolved]
  - Joint swelling [Recovering/Resolving]
